FAERS Safety Report 14145819 (Version 2)
Quarter: 2017Q4

REPORT INFORMATION
  Report Type: Spontaneous
  Country: US (occurrence: US)
  Receive Date: 20171031
  Receipt Date: 20171115
  Transmission Date: 20180321
  Serious: Yes (Other)
  Sender: FDA-Public Use
  Company Number: US-AKORN PHARMACEUTICALS-2017AKN01256

PATIENT
  Age: 19 Year
  Sex: Female
  Weight: 66.21 kg

DRUGS (5)
  1. CLARAVIS [Suspect]
     Active Substance: ISOTRETINOIN
     Indication: ACNE
     Dosage: UNK
     Dates: start: 20170502, end: 2017
  2. SKYLA (IUD) [Concomitant]
     Dosage: UNK
     Dates: start: 20170206
  3. MYORISAN [Suspect]
     Active Substance: ISOTRETINOIN
     Indication: ACNE
     Dosage: 40 MG, 1X/DAY ALTERNATING WITH TWICE DAILY DOSE EVERY OTHER DAY
     Dates: start: 20170403, end: 20171019
  4. ALBUTEROL. [Concomitant]
     Active Substance: ALBUTEROL
     Dosage: UNK, AS NEEDED
  5. MYORISAN [Suspect]
     Active Substance: ISOTRETINOIN
     Dosage: 40 MG, 2X/DAY ALTERNATING WITH ONCE DAILY DOSE EVERY OTHER DAY
     Dates: start: 20170403, end: 20171019

REACTIONS (4)
  - Anxiety [Recovering/Resolving]
  - Panic attack [Recovered/Resolved]
  - Depression [Recovering/Resolving]
  - Muscle twitching [Recovering/Resolving]

NARRATIVE: CASE EVENT DATE: 201708
